FAERS Safety Report 16114553 (Version 1)
Quarter: 2019Q1

REPORT INFORMATION
  Report Type: Spontaneous
  Country: FR (occurrence: FR)
  Receive Date: 20190325
  Receipt Date: 20190325
  Transmission Date: 20190418
  Serious: Yes (Hospitalization)
  Sender: FDA-Public Use
  Company Number: FR-PFIZER INC-2019124010

PATIENT
  Age: 42 Year
  Sex: Male
  Weight: 103 kg

DRUGS (21)
  1. LAROXYL [Concomitant]
     Active Substance: AMITRIPTYLINE HYDROCHLORIDE
     Dosage: 50 MG, 1X/DAY
     Route: 048
  2. SERESTA [Concomitant]
     Active Substance: OXAZEPAM
     Dosage: UNK
     Route: 048
  3. MIANSERIN HYDROCHLORIDE [Concomitant]
     Active Substance: MIANSERIN HYDROCHLORIDE
     Dosage: 60 MG, 1X/DAY
     Route: 048
  4. ESOMEPRAZOLE. [Concomitant]
     Active Substance: ESOMEPRAZOLE MAGNESIUM
     Dosage: UNK
     Route: 048
  5. PREGABALIN. [Concomitant]
     Active Substance: PREGABALIN
     Dosage: 150 MG, 1X/DAY
     Route: 048
     Dates: start: 20190125, end: 20190128
  6. LOVENOX [Concomitant]
     Active Substance: ENOXAPARIN SODIUM
     Dosage: 4000 IU, 1X/DAY
     Route: 058
     Dates: start: 20190125, end: 20190127
  7. METHADONE AP HP [Concomitant]
     Active Substance: METHADONE HYDROCHLORIDE
     Dosage: 60 MG, 1X/DAY
     Route: 048
  8. SEEBRI BREEZHALER [Concomitant]
     Active Substance: GLYCOPYRROLATE
     Dosage: UNK
     Route: 055
  9. GENTAMICIN. [Suspect]
     Active Substance: GENTAMICIN
     Indication: STAPHYLOCOCCAL INFECTION
     Dosage: 320 MG, 1X/DAY
     Route: 042
     Dates: start: 20190126, end: 20190127
  10. DOLIPRANE [Concomitant]
     Active Substance: ACETAMINOPHEN
     Dosage: 4 G, 1X/DAY
     Route: 048
     Dates: start: 20190124
  11. OXYNORM [Concomitant]
     Active Substance: OXYCODONE HYDROCHLORIDE
     Dosage: 1 DF, SINGLE (1 VIAL)
     Route: 042
     Dates: start: 20190125, end: 20190125
  12. PIPERACILLIN/TAZOBACTAM [Suspect]
     Active Substance: PIPERACILLIN SODIUM\TAZOBACTAM SODIUM
     Indication: STAPHYLOCOCCAL INFECTION
     Dosage: UNK
     Route: 042
     Dates: start: 20190125, end: 20190130
  13. SERETIDE [Concomitant]
     Active Substance: FLUTICASONE PROPIONATE\SALMETEROL XINAFOATE
     Dosage: 2 DF, 2X/DAY (2 DF IN THE MORNING AND IN THE EVENING)
     Route: 055
  14. KETAMINE [Concomitant]
     Active Substance: KETAMINE
     Dosage: UNK
     Route: 042
     Dates: start: 20190125, end: 20190126
  15. VANCOMYCIN [Suspect]
     Active Substance: VANCOMYCIN
     Indication: STAPHYLOCOCCAL INFECTION
     Dosage: 3 G, 1X/DAY
     Route: 042
     Dates: start: 20190125, end: 20190128
  16. DROPERIDOL. [Concomitant]
     Active Substance: DROPERIDOL
     Dosage: UNK
     Route: 042
     Dates: start: 20190125, end: 20190127
  17. SETOFILM [Concomitant]
     Active Substance: ONDANSETRON
     Dosage: 4 MG, 1X/DAY
     Route: 048
     Dates: start: 20190124
  18. MOVICOL [Concomitant]
     Active Substance: POLYETHYLENE GLYCOL 3350\POTASSIUM CHLORIDE\SODIUM BICARBONATE\SODIUM CHLORIDE
     Dosage: 1 DF, 1X/DAY
     Route: 048
     Dates: start: 20190124
  19. OXYCODONE [Concomitant]
     Active Substance: OXYCODONE
     Dosage: 40 MG, 1X/DAY
     Route: 048
  20. NORMACOL LAVAMENT [Concomitant]
     Dosage: 1 DF, 1X/DAY
     Route: 054
     Dates: start: 20190125, end: 20190211
  21. EDUCTYL [Concomitant]
     Active Substance: POTASSIUM BITARTRATE\SODIUM BICARBONATE
     Dosage: UNK
     Route: 054
     Dates: start: 20190125, end: 20190211

REACTIONS (3)
  - Renal tubular necrosis [Recovered/Resolved]
  - Acute kidney injury [Recovered/Resolved]
  - Overdose [Recovered/Resolved]

NARRATIVE: CASE EVENT DATE: 20190126
